FAERS Safety Report 24624279 (Version 1)
Quarter: 2024Q4

REPORT INFORMATION
  Report Type: Spontaneous
  Country: LB (occurrence: LB)
  Receive Date: 20241115
  Receipt Date: 20241115
  Transmission Date: 20250114
  Serious: Yes (Death)
  Sender: PFIZER
  Company Number: LB-PFIZER INC-PV202400147549

PATIENT
  Age: 46 Year
  Sex: Female

DRUGS (1)
  1. LORBRENA [Suspect]
     Active Substance: LORLATINIB
     Dosage: 100 MG, 1X/DAY
     Route: 048
     Dates: start: 202410

REACTIONS (1)
  - Death [Fatal]

NARRATIVE: CASE EVENT DATE: 20241110
